FAERS Safety Report 12272740 (Version 2)
Quarter: 2016Q2

REPORT INFORMATION
  Report Type: Spontaneous
  Country: US (occurrence: US)
  Receive Date: 20160415
  Receipt Date: 20160624
  Transmission Date: 20160815
  Serious: No
  Sender: FDA-Public Use
  Company Number: US-PFIZER INC-2016186911

PATIENT
  Age: 44 Year
  Sex: Female
  Weight: 129.71 kg

DRUGS (2)
  1. ZOLADEX [Concomitant]
     Active Substance: GOSERELIN ACETATE
     Dosage: UNK
  2. IBRANCE [Suspect]
     Active Substance: PALBOCICLIB
     Indication: BREAST CANCER METASTATIC
     Dosage: 125 MG, CYCLIC (21-28)
     Route: 048
     Dates: start: 20160310

REACTIONS (5)
  - Insomnia [Unknown]
  - Nausea [Unknown]
  - Stomatitis [Unknown]
  - Hot flush [Unknown]
  - Vomiting [Unknown]
